FAERS Safety Report 26152181 (Version 1)
Quarter: 2025Q4

REPORT INFORMATION
  Report Type: Report from Study
  Country: EU (occurrence: EU)
  Receive Date: 20251214
  Receipt Date: 20251214
  Transmission Date: 20260117
  Serious: Yes (Hospitalization)
  Sender: ABBVIE
  Company Number: EU-ABBVIE-5839773

PATIENT
  Age: 75 Year
  Sex: Male

DRUGS (3)
  1. FOSCARBIDOPA\FOSLEVODOPA [Suspect]
     Active Substance: FOSCARBIDOPA\FOSLEVODOPA
     Indication: Parkinson^s disease
     Dosage: CRN: 0.36 ML/H, CR: 0.37 ML/H, CRH: 0.38 ML/H, ED: 0.15 ML?LAST ADMINISTRATION DATE: 2024
     Route: 058
     Dates: start: 20240624
  2. FOSCARBIDOPA\FOSLEVODOPA [Suspect]
     Active Substance: FOSCARBIDOPA\FOSLEVODOPA
     Dosage: (SD: 0.60 ML), CRN: 0.28 ML/H, CR: 0.30 ML/H, CRH: 0.32 ML/H
     Route: 058
     Dates: start: 2024
  3. FOSCARBIDOPA\FOSLEVODOPA [Suspect]
     Active Substance: FOSCARBIDOPA\FOSLEVODOPA
     Dosage: CRN: 0.44 ML/H, CR: 0.44 ML/H, CRH: 0.50 ML/H, ED: 0.30ML
     Route: 058

REACTIONS (5)
  - Fall [Recovering/Resolving]
  - Infusion site swelling [Recovering/Resolving]
  - Infusion site induration [Not Recovered/Not Resolved]
  - Infusion site discomfort [Not Recovered/Not Resolved]
  - Infusion site nodule [Recovering/Resolving]

NARRATIVE: CASE EVENT DATE: 20240101
